FAERS Safety Report 4676776-5 (Version None)
Quarter: 2005Q2

REPORT INFORMATION
  Report Type: 
  Country: None (occurrence: None)
  Receive Date: 20050527
  Receipt Date: 20050513
  Transmission Date: 20051028
  Serious: Yes (Other)
  Sender: FDA-Public Use
  Company Number: 2004S1000206

PATIENT
  Sex: Female

DRUGS (1)
  1. SORIATANE [Suspect]
     Dosage: VAG
     Route: 067
     Dates: start: 20040816, end: 20041001

REACTIONS (1)
  - NO ADVERSE DRUG EFFECT [None]
